FAERS Safety Report 10818644 (Version 1)
Quarter: 2015Q1

REPORT INFORMATION
  Report Type: Spontaneous
  Country: US (occurrence: US)
  Receive Date: 20150218
  Receipt Date: 20150218
  Transmission Date: 20150721
  Serious: No
  Sender: FDA-Public Use
  Company Number: US-PFIZER INC-2015061056

PATIENT

DRUGS (2)
  1. CORTISONE [Suspect]
     Active Substance: CORTISONE\HYDROCORTISONE
     Dosage: UNK
  2. DOXYCYCLINE CALCIUM [Suspect]
     Active Substance: DOXYCYCLINE CALCIUM
     Dosage: UNK

REACTIONS (1)
  - Drug hypersensitivity [Unknown]
